FAERS Safety Report 9000271 (Version 1)
Quarter: 2013Q1

REPORT INFORMATION
  Report Type: Spontaneous
  Country: US (occurrence: None)
  Receive Date: 20130102
  Receipt Date: 20130102
  Transmission Date: 20140127
  Serious: Yes (Hospitalization)
  Sender: FDA-Public Use
  Company Number: None

PATIENT
  Age: 48 Year
  Sex: Female
  Weight: 59.5 kg

DRUGS (1)
  1. VENLAFAXINE [Suspect]
     Dosage: 225 MG EVERY DAY PO
     Route: 048
     Dates: start: 20120823, end: 20121222

REACTIONS (2)
  - Muscle spasms [None]
  - Serotonin syndrome [None]
